FAERS Safety Report 21756759 (Version 1)
Quarter: 2022Q4

REPORT INFORMATION
  Report Type: Spontaneous
  Country: ES (occurrence: None)
  Receive Date: 20221220
  Receipt Date: 20221220
  Transmission Date: 20230113
  Serious: Yes (Hospitalization)
  Sender: FDA-Public Use
  Company Number: 2022A405782

PATIENT
  Age: 73 Year

DRUGS (12)
  1. QUETIAPINE [Suspect]
     Active Substance: QUETIAPINE
     Indication: Persistent depressive disorder
     Route: 048
  2. DESVENLAFAXINE [Concomitant]
     Active Substance: DESVENLAFAXINE
     Route: 065
  3. KETAZOLAM [Concomitant]
     Active Substance: KETAZOLAM
     Route: 065
  4. LORAZEPAM [Concomitant]
     Active Substance: LORAZEPAM
     Route: 065
  5. ENALAPRIL/HIDROCLOROTHIAZIDE [Concomitant]
     Route: 065
  6. OMEPRAZOLE [Concomitant]
     Active Substance: OMEPRAZOLE
     Route: 065
  7. SIMVASTATIN [Concomitant]
     Active Substance: SIMVASTATIN
     Route: 065
  8. TRAMADOL [Concomitant]
     Active Substance: TRAMADOL
     Route: 065
  9. ACETAMINOPHEN [Concomitant]
     Active Substance: ACETAMINOPHEN
     Route: 065
  10. ALENDRONATE [Concomitant]
     Active Substance: ALENDRONATE SODIUM
     Route: 065
  11. CHOLECALCIFEROL [Concomitant]
     Active Substance: CHOLECALCIFEROL
     Route: 065
  12. CALCIFEDIOL [Concomitant]
     Active Substance: CALCIFEDIOL
     Route: 065

REACTIONS (2)
  - Colitis ischaemic [Recovered/Resolved]
  - Inappropriate schedule of product administration [Unknown]
